FAERS Safety Report 18651890 (Version 2)
Quarter: 2020Q4

REPORT INFORMATION
  Report Type: Report from Study
  Country: FR (occurrence: FR)
  Receive Date: 20201222
  Receipt Date: 20201229
  Transmission Date: 20210114
  Serious: Yes (Death)
  Sender: FDA-Public Use
  Company Number: FR-PFIZER INC-2020502651

PATIENT
  Weight: 47 kg

DRUGS (9)
  1. MITOXANTRONE HYDROCHLORIDE. [Suspect]
     Active Substance: MITOXANTRONE HYDROCHLORIDE
     Indication: ACUTE MYELOID LEUKAEMIA
     Dosage: 12 MG/M2, 1X/DAY
     Route: 042
     Dates: start: 20201113, end: 20201116
  2. MIDAZOLAM. [Concomitant]
     Active Substance: MIDAZOLAM
     Indication: ANAESTHESIA
     Dosage: 5 MG, CYCLIC (Q.H)
     Dates: start: 20201205, end: 20201206
  3. MORPHINE [Concomitant]
     Active Substance: MORPHINE
     Indication: SEIZURE
  4. MIDAZOLAM. [Concomitant]
     Active Substance: MIDAZOLAM
     Indication: SEIZURE
  5. KETAMINE [Concomitant]
     Active Substance: KETAMINE
     Indication: ANAESTHESIA
     Dosage: 20 MG, 2X/DAY
     Dates: start: 20201205, end: 20201206
  6. GEMTUZUMAB OZOGAMICIN [Suspect]
     Active Substance: GEMTUZUMAB OZOGAMICIN
     Indication: ACUTE MYELOID LEUKAEMIA
     Dosage: 4.4 MG (OTHER)
     Route: 042
     Dates: start: 20201116, end: 20201116
  7. CEFAZOLINE [CEFAZOLIN] [Concomitant]
     Active Substance: CEFAZOLIN
     Indication: SEPSIS
     Dosage: 2 MG, 3X/DAY
     Dates: start: 20201204, end: 20201207
  8. KETAMINE [Concomitant]
     Active Substance: KETAMINE
     Indication: SEIZURE
  9. MORPHINE [Concomitant]
     Active Substance: MORPHINE
     Indication: ANAESTHESIA
     Dosage: 5 MG, CYCLIC (Q,H)
     Dates: start: 20201128, end: 20201206

REACTIONS (4)
  - Seizure [Fatal]
  - Brain oedema [Fatal]
  - Hyperammonaemia [Fatal]
  - Sepsis [Fatal]

NARRATIVE: CASE EVENT DATE: 20201207
